FAERS Safety Report 10775990 (Version 5)
Quarter: 2015Q2

REPORT INFORMATION
  Report Type: Spontaneous
  Country: US (occurrence: None)
  Receive Date: 20150205
  Receipt Date: 20150622
  Transmission Date: 20150821
  Serious: Yes (Other)
  Sender: FDA-Public Use
  Company Number: ADR-2014-02225

PATIENT
  Age: 49 Year
  Sex: Female

DRUGS (5)
  1. FENTANYL. [Suspect]
     Active Substance: FENTANYL
  2. ROPIVICAINE [Suspect]
     Active Substance: ROPIVACAINE
  3. HYDROMORPHINE [Suspect]
     Active Substance: HYDROMORPHONE
  4. BACLOFEN. [Suspect]
     Active Substance: BACLOFEN
     Indication: POST LAMINECTOMY SYNDROME
  5. MORPHINE [Suspect]
     Active Substance: MORPHINE

REACTIONS (8)
  - Anxiety [None]
  - Off label use [None]
  - Device infusion issue [None]
  - Device issue [None]
  - Accidental overdose [None]
  - Dizziness [None]
  - Gastrointestinal disorder [None]
  - Device breakage [None]

NARRATIVE: CASE EVENT DATE: 20141031
